FAERS Safety Report 11203061 (Version 1)
Quarter: 2015Q2

REPORT INFORMATION
  Report Type: Spontaneous
  Country: US (occurrence: None)
  Receive Date: 20150608
  Receipt Date: 20150608
  Transmission Date: 20150821
  Serious: No
  Sender: FDA-Public Use
  Company Number: 2015TUS002286

PATIENT
  Age: 73 Year
  Sex: Female
  Weight: 88 kg

DRUGS (6)
  1. OMEPRAZOLE (OMEPRAZOLE) [Concomitant]
     Active Substance: OMEPRAZOLE
  2. LYRICA [Concomitant]
     Active Substance: PREGABALIN
  3. CYCLOBENZAPRINE (CYCLOBENZAPRINE) [Concomitant]
     Active Substance: CYCLOBENZAPRINE
  4. LEVOTHYROXINE (LEVOTHYROXINE) [Concomitant]
     Active Substance: LEVOTHYROXINE
  5. PRAVASTATIN [Concomitant]
     Active Substance: PRAVASTATIN\PRAVASTATIN SODIUM
  6. BRINTELLIX [Suspect]
     Active Substance: VORTIOXETINE HYDROBROMIDE
     Indication: MAJOR DEPRESSION
     Dosage: SAMPLES
     Route: 048
     Dates: start: 20141219, end: 20150119

REACTIONS (2)
  - Product quality issue [None]
  - Visual impairment [None]
